FAERS Safety Report 12297817 (Version 6)
Quarter: 2016Q3

REPORT INFORMATION
  Report Type: Spontaneous
  Country: FR (occurrence: FR)
  Receive Date: 20160422
  Receipt Date: 20160906
  Transmission Date: 20161109
  Serious: Yes (Death, Other)
  Sender: FDA-Public Use
  Company Number: FR-PFIZER INC-2016206015

PATIENT
  Age: 27 Year
  Sex: Female

DRUGS (6)
  1. NIMBEX [Suspect]
     Active Substance: CISATRACURIUM BESYLATE
     Indication: SUICIDE ATTEMPT
     Dosage: UNK UNK, SINGLE (ONCE)
     Route: 065
  2. INSULIN [Concomitant]
     Active Substance: INSULIN NOS
     Dosage: UNK
  3. AMIODARONE HCL [Suspect]
     Active Substance: AMIODARONE HYDROCHLORIDE
     Indication: COMPLETED SUICIDE
     Dosage: UNK UNK, SINGLE  (ONCE)
     Route: 065
  4. HYPNOVEL [Suspect]
     Active Substance: MIDAZOLAM\MIDAZOLAM HYDROCHLORIDE
     Indication: SUICIDE ATTEMPT
     Dosage: UNK UNK, SINGLE (ONCE)
     Route: 065
  5. DIPRIVAN [Suspect]
     Active Substance: PROPOFOL
     Indication: SUICIDE ATTEMPT
     Dosage: UNK UNK, SINGLE (ONCE)
     Route: 065
  6. ATRACURIUM BESILATE [Suspect]
     Active Substance: ATRACURIUM BESYLATE
     Dosage: UNK

REACTIONS (8)
  - Completed suicide [Fatal]
  - Toxicity to various agents [Fatal]
  - Coma [Fatal]
  - Cardiogenic shock [Fatal]
  - Drug level above therapeutic [Fatal]
  - Circulatory collapse [Fatal]
  - Hypotension [Fatal]
  - Respiratory failure [Fatal]
